FAERS Safety Report 17370940 (Version 2)
Quarter: 2020Q1

REPORT INFORMATION
  Report Type: Spontaneous
  Country: US (occurrence: US)
  Receive Date: 20200205
  Receipt Date: 20200220
  Transmission Date: 20200409
  Serious: Yes (Death, Other)
  Sender: FDA-Public Use
  Company Number: US-AUROBINDO-AUR-APL-2020-004982

PATIENT
  Age: 36 Year
  Sex: Female

DRUGS (1)
  1. LOSARTAN POTASSIUM AND HYDROCHLOROTHIAZIDE [Suspect]
     Active Substance: HYDROCHLOROTHIAZIDE\LOSARTAN POTASSIUM
     Indication: PRODUCT USED FOR UNKNOWN INDICATION
     Dosage: UNK
     Route: 065
     Dates: start: 20190420

REACTIONS (11)
  - Cardiac failure [Fatal]
  - Cardiac arrest [Fatal]
  - Acute respiratory distress syndrome [Fatal]
  - Dyspnoea [Unknown]
  - Condition aggravated [Unknown]
  - Hypoxia [Unknown]
  - Incontinence [Unknown]
  - Nausea [Unknown]
  - Eosinophilic pneumonia acute [Fatal]
  - Carditis [Fatal]
  - Respiratory failure [Fatal]
